FAERS Safety Report 10432672 (Version 1)
Quarter: 2014Q3

REPORT INFORMATION
  Report Type: Spontaneous
  Country: AU (occurrence: AU)
  Receive Date: 20140905
  Receipt Date: 20140905
  Transmission Date: 20150326
  Serious: Yes (Other)
  Sender: FDA-Public Use
  Company Number: AU-BAYER-2014-131103

PATIENT
  Age: 27 Year
  Sex: Female
  Weight: 87 kg

DRUGS (2)
  1. MIRENA [Suspect]
     Active Substance: LEVONORGESTREL
     Dosage: 20 MCG/24HR, CONT
     Route: 015
     Dates: start: 20121101, end: 20140902
  2. DUROMINE [Concomitant]
     Active Substance: PHENTERMINE
     Dosage: UNK
     Dates: start: 2013, end: 2013

REACTIONS (7)
  - Vulvovaginal discomfort [None]
  - Vaginitis bacterial [None]
  - Vulvovaginal candidiasis [None]
  - Weight decreased [None]
  - Staphylococcal infection [None]
  - Pregnancy with contraceptive device [None]
  - Drug ineffective [None]

NARRATIVE: CASE EVENT DATE: 2013
